FAERS Safety Report 20883018 (Version 1)
Quarter: 2022Q2

REPORT INFORMATION
  Report Type: Spontaneous
  Country: ES (occurrence: None)
  Receive Date: 20220527
  Receipt Date: 20220527
  Transmission Date: 20220721
  Serious: Yes (Other)
  Sender: FDA-Public Use
  Company Number: ES-MICRO LABS LIMITED-ML2022-02306

PATIENT
  Age: 82 Month
  Sex: Female

DRUGS (16)
  1. CLOBAZAM [Suspect]
     Active Substance: CLOBAZAM
     Indication: Seizure
  2. LEVETIRACETAM [Suspect]
     Active Substance: LEVETIRACETAM
     Indication: Seizure
  3. VALPROATE [Suspect]
     Active Substance: VALPROIC ACID
     Indication: Seizure
  4. CARBAMAZEPINE [Suspect]
     Active Substance: CARBAMAZEPINE
     Indication: Seizure
  5. ETHOSUXIMIDE [Suspect]
     Active Substance: ETHOSUXIMIDE
     Indication: Seizure
  6. DIAZEPAM [Suspect]
     Active Substance: DIAZEPAM
     Indication: Seizure
  7. OXCARBAZEPINE [Suspect]
     Active Substance: OXCARBAZEPINE
     Indication: Seizure
  8. PHENYTOIN [Suspect]
     Active Substance: PHENYTOIN
     Indication: Seizure
  9. ZONISAMIDE [Suspect]
     Active Substance: ZONISAMIDE
     Indication: Seizure
  10. LACOSAMIDE [Suspect]
     Active Substance: LACOSAMIDE
     Indication: Seizure
  11. PHENOBARBITAL [Suspect]
     Active Substance: PHENOBARBITAL
     Indication: Seizure
  12. SULTHIAME [Suspect]
     Active Substance: SULTHIAME
     Indication: Seizure
  13. VIGABATRIN [Suspect]
     Active Substance: VIGABATRIN
     Indication: Seizure
  14. TOPIRAMATE [Suspect]
     Active Substance: TOPIRAMATE
     Indication: Seizure
  15. LAMOTRIGINE [Suspect]
     Active Substance: LAMOTRIGINE
     Indication: Seizure
  16. PERAMPANEL [Suspect]
     Active Substance: PERAMPANEL
     Indication: Seizure

REACTIONS (1)
  - Epilepsy [Unknown]
